FAERS Safety Report 8230898-0 (Version None)
Quarter: 2012Q1

REPORT INFORMATION
  Report Type: 
  Country: None (occurrence: None)
  Receive Date: 20120320
  Receipt Date: 20120221
  Transmission Date: 20120608
  Serious: Yes (Other)
  Sender: FDA-Public Use
  Company Number: 2012-018824

PATIENT

DRUGS (1)
  1. ASPIRIN [Suspect]
     Indication: ISCHAEMIC HEART DISEASE PROPHYLAXIS
     Dosage: DAILY DOSE 2 DF, ORAL
     Route: 048

REACTIONS (2)
  - CORONARY ARTERY STENOSIS [None]
  - MYOCARDIAL INFARCTION [None]
